FAERS Safety Report 4672396-7 (Version None)
Quarter: 2005Q2

REPORT INFORMATION
  Report Type: 
  Country: None (occurrence: None)
  Receive Date: 20050524
  Receipt Date: 20050512
  Transmission Date: 20051028
  Serious: Yes (Hospitalization)
  Sender: FDA-Public Use
  Company Number: US-JNJFOC-20050503300

PATIENT
  Sex: Female

DRUGS (24)
  1. INFLIXIMAB [Suspect]
     Indication: RHEUMATOID ARTHRITIS
     Route: 042
  2. ALBUTEROL [Concomitant]
  3. ASACOL [Concomitant]
  4. BECONASE [Concomitant]
  5. DONNATAL [Concomitant]
  6. DONNATAL [Concomitant]
  7. DONNATAL [Concomitant]
  8. DONNATAL [Concomitant]
  9. FOLIC ACID [Concomitant]
  10. GUAIFENESIN [Concomitant]
  11. HYDROCODONE BITARTRATE + ACETAMINOPHEN [Concomitant]
  12. HYDROCODONE BITARTRATE + ACETAMINOPHEN [Concomitant]
     Dosage: 10/500 MG, 6 IN 1 DAY
  13. FUROSEMIDE [Concomitant]
  14. LODINE [Concomitant]
  15. NYSTATIN [Concomitant]
  16. OXYCONTIN [Concomitant]
  17. PLAQUENIL [Concomitant]
  18. POTASSIUM CHLORIDE [Concomitant]
  19. PREDNISONE [Concomitant]
  20. PREMARIN [Concomitant]
  21. PROMETHAZINE [Concomitant]
  22. ADVAIR DISKUS 100/50 [Concomitant]
  23. ADVAIR DISKUS 100/50 [Concomitant]
  24. SINGULAIR [Concomitant]

REACTIONS (4)
  - CHRONIC OBSTRUCTIVE PULMONARY DISEASE [None]
  - PNEUMONIA [None]
  - RESPIRATORY FAILURE [None]
  - URINARY TRACT INFECTION [None]
